FAERS Safety Report 8597670-3 (Version None)
Quarter: 2012Q3

REPORT INFORMATION
  Report Type: 
  Country: None (occurrence: None)
  Receive Date: 20120816
  Receipt Date: 20120814
  Transmission Date: 20120928
  Serious: Yes (Other)
  Sender: FDA-Public Use
  Company Number: US-PFIZER INC-2012198827

PATIENT
  Age: 59 Year
  Sex: Female
  Weight: 97.506 kg

DRUGS (3)
  1. GEODON [Suspect]
     Indication: SCHIZOPHRENIA
     Dosage: 160 MG (TWO OF 80MG), 1X/DAY
     Route: 048
     Dates: start: 20090601, end: 20120101
  2. SEROQUEL [Concomitant]
     Dosage: UNK
  3. PROZAC [Concomitant]
     Indication: DEPRESSION
     Dosage: UNK

REACTIONS (9)
  - FEAR [None]
  - ANXIETY [None]
  - APATHY [None]
  - DECREASED ACTIVITY [None]
  - STRESS [None]
  - ACTIVITIES OF DAILY LIVING IMPAIRED [None]
  - IRRITABILITY [None]
  - DYSPHONIA [None]
  - ANGER [None]
